FAERS Safety Report 7901672-7 (Version None)
Quarter: 2011Q4

REPORT INFORMATION
  Report Type: 
  Country: None (occurrence: None)
  Receive Date: 20111108
  Receipt Date: 20111031
  Transmission Date: 20120403
  Serious: Yes (Other)
  Sender: FDA-Public Use
  Company Number: BR-SANOFI-AVENTIS-2011SA071796

PATIENT
  Age: 13 Year
  Sex: Male
  Weight: 60 kg

DRUGS (3)
  1. HUMALOG [Concomitant]
     Dosage: CORRECTIVE THERAPYDOSE: 4 TO 6 IU
  2. HUMALOG [Concomitant]
     Route: 058
  3. LANTUS [Suspect]
     Dosage: 30IU IN MORNING 20IU IN EVENING
     Route: 058
     Dates: start: 20100101

REACTIONS (8)
  - KETOACIDOSIS [None]
  - HYPERGLYCAEMIA [None]
  - DIZZINESS [None]
  - PALLOR [None]
  - EMOTIONAL DISORDER [None]
  - VOMITING [None]
  - HYPOGLYCAEMIA [None]
  - DRUG ADMINISTRATION ERROR [None]
